FAERS Safety Report 9235674 (Version 1)
Quarter: 2013Q2

REPORT INFORMATION
  Report Type: Spontaneous
  Country: US (occurrence: US)
  Receive Date: 20130417
  Receipt Date: 20130417
  Transmission Date: 20140414
  Serious: No
  Sender: FDA-Public Use
  Company Number: US-JNJFOC-20130401753

PATIENT
  Sex: Female
  Weight: 56.25 kg

DRUGS (6)
  1. DURAGESIC [Suspect]
     Indication: PAIN OF SKIN
     Dosage: (TWO 100 UG/HR PATCHES AND ONE 50 UG/HR PATCH)
     Route: 062
     Dates: start: 2007
  2. DURAGESIC [Suspect]
     Indication: PAIN OF SKIN
     Route: 062
     Dates: start: 2011
  3. DURAGESIC [Suspect]
     Indication: ARTHRALGIA
     Route: 062
     Dates: start: 2011
  4. DURAGESIC [Suspect]
     Indication: ARTHRALGIA
     Dosage: (TWO 100 UG/HR PATCHES AND ONE 50 UG/HR PATCH)
     Route: 062
     Dates: start: 2007
  5. WATSON FENTANYL TRANSDERMAL SYSTEM [Suspect]
     Indication: PRODUCT USED FOR UNKNOWN INDICATION
     Route: 062
  6. PREDNISONE [Concomitant]
     Indication: PRODUCT USED FOR UNKNOWN INDICATION
     Route: 065
     Dates: end: 201302

REACTIONS (14)
  - Withdrawal syndrome [Unknown]
  - Product quality issue [Unknown]
  - Wrong technique in drug usage process [Recovered/Resolved]
  - Intentional drug misuse [Recovered/Resolved]
  - Product quality issue [Recovered/Resolved]
  - Drug ineffective [Recovered/Resolved]
  - Wrong technique in drug usage process [Recovered/Resolved]
  - Wrong technique in drug usage process [Recovered/Resolved]
  - Wrong technique in drug usage process [Recovered/Resolved]
  - Dysgeusia [Recovered/Resolved]
  - Skin irritation [Recovered/Resolved]
  - Hyperhidrosis [Recovered/Resolved]
  - Treatment noncompliance [Unknown]
  - Drug effect increased [Not Recovered/Not Resolved]
